FAERS Safety Report 8889307 (Version 1)
Quarter: 2012Q4

REPORT INFORMATION
  Report Type: 
  Country: SI (occurrence: SI)
  Receive Date: 20121106
  Receipt Date: 20121106
  Transmission Date: 20130627
  Serious: Yes (Hospitalization)
  Sender: FDA-Public Use
  Company Number: SI-UCBSA-069975

PATIENT
  Age: 69 Year
  Sex: Female
  Weight: 59 kg

DRUGS (6)
  1. CIMZIA [Suspect]
     Route: 058
     Dates: start: 20100329, end: 20120830
  2. LERCAPRESS [Concomitant]
  3. BONVIVA [Concomitant]
  4. ALPHA D3 [Concomitant]
  5. METILPREDNIZOLON [Concomitant]
     Indication: RHEUMATOID ARTHRITIS
     Dosage: DAILY DOSE: 400MG
  6. METOTREKSAT [Concomitant]
     Indication: RHEUMATOID ARTHRITIS

REACTIONS (1)
  - Squamous cell carcinoma [Recovering/Resolving]
